FAERS Safety Report 13277723 (Version 1)
Quarter: 2017Q1

REPORT INFORMATION
  Report Type: Spontaneous
  Country: GB (occurrence: GB)
  Receive Date: 20170228
  Receipt Date: 20170228
  Transmission Date: 20170428
  Serious: Yes (Disabling)
  Sender: FDA-Public Use
  Company Number: GB-GILEAD-2017-0259425

PATIENT
  Age: 62 Year
  Sex: Male
  Weight: 61 kg

DRUGS (4)
  1. DARUNAVIR [Concomitant]
     Active Substance: DARUNAVIR
  2. HARVONI [Suspect]
     Active Substance: LEDIPASVIR\SOFOSBUVIR
     Indication: HEPATITIS C
     Route: 048
     Dates: start: 20161007, end: 20161207
  3. ABACAVIR. [Concomitant]
     Active Substance: ABACAVIR
  4. RITONAVIR. [Concomitant]
     Active Substance: RITONAVIR

REACTIONS (1)
  - Visual acuity reduced [Not Recovered/Not Resolved]

NARRATIVE: CASE EVENT DATE: 20161101
